FAERS Safety Report 13793009 (Version 1)
Quarter: 2017Q3

REPORT INFORMATION
  Report Type: Spontaneous
  Country: US (occurrence: US)
  Receive Date: 20170726
  Receipt Date: 20170726
  Transmission Date: 20171127
  Serious: No
  Sender: FDA-Public Use
  Company Number: None

PATIENT
  Age: 79 Year
  Sex: Male
  Weight: 90.72 kg

DRUGS (15)
  1. ASPRIN [Concomitant]
     Active Substance: ASPIRIN
  2. LEVOTHYROXINE. [Concomitant]
     Active Substance: LEVOTHYROXINE
  3. FERROUS SULF EC [Concomitant]
  4. FUROSEMIDE. [Concomitant]
     Active Substance: FUROSEMIDE
  5. FISH OIL [Concomitant]
     Active Substance: FISH OIL
  6. REGLAN [Suspect]
     Active Substance: METOCLOPRAMIDE HYDROCHLORIDE
     Indication: DYSPEPSIA
     Dosage: QUANTITY:180; FREQUENCY 1-MORNING, 1-BEDTIME?
     Route: 048
     Dates: start: 201703, end: 20170714
  7. REGLAN [Suspect]
     Active Substance: METOCLOPRAMIDE HYDROCHLORIDE
     Indication: GASTRIC DISORDER
     Dosage: QUANTITY:180; FREQUENCY 1-MORNING, 1-BEDTIME?
     Route: 048
     Dates: start: 201703, end: 20170714
  8. MIRTAZAPINE. [Concomitant]
     Active Substance: MIRTAZAPINE
  9. TEMAZEPAM. [Concomitant]
     Active Substance: TEMAZEPAM
  10. SPIRONOLACTONE. [Concomitant]
     Active Substance: SPIRONOLACTONE
  11. ACETAMINOPHEN/CODENE [Concomitant]
  12. VITAMIN B12 [Concomitant]
     Active Substance: CYANOCOBALAMIN
  13. BACLOFEN. [Concomitant]
     Active Substance: BACLOFEN
  14. OMEPRAZOLE DR [Concomitant]
     Active Substance: OMEPRAZOLE
  15. COMPLETE MULTIVITAMIN [Concomitant]
     Active Substance: VITAMINS

REACTIONS (2)
  - Peripheral swelling [None]
  - Swelling [None]

NARRATIVE: CASE EVENT DATE: 20170712
